FAERS Safety Report 8844947 (Version 1)
Quarter: 2012Q4

REPORT INFORMATION
  Report Type: Spontaneous
  Country: US (occurrence: None)
  Receive Date: 20121002
  Receipt Date: 20121002
  Transmission Date: 20130627
  Serious: Yes (Hospitalization)
  Sender: FDA-Public Use
  Company Number: RB-38995-2012

PATIENT
  Age: 62 Year
  Sex: Male

DRUGS (8)
  1. SUBOXONE [Suspect]
     Indication: DRUG DEPENDENCE
     Route: 060
     Dates: start: 201105, end: 201112
  2. SUBOXONE [Suspect]
     Indication: DRUG DEPENDENCE
     Route: 060
     Dates: start: 201112
  3. ALCOHOL [Suspect]
     Indication: ALCOHOL ABUSE
     Dosage: (Unknown dosage details oral)
     Route: 048
     Dates: end: 20120412
  4. ANTABUSE [Concomitant]
  5. FUROSEMIDE [Concomitant]
  6. OMEPRAZOLE [Concomitant]
  7. DOXAZOSIN [Concomitant]
  8. LEVOTHYROX [Concomitant]

REACTIONS (4)
  - Wrong technique in drug usage process [None]
  - Palpitations [None]
  - Tachycardia [None]
  - Asthenia [None]
